FAERS Safety Report 4874991-9 (Version None)
Quarter: 2006Q1

REPORT INFORMATION
  Report Type: 
  Country: None (occurrence: None)
  Receive Date: 20060104
  Receipt Date: 20051223
  Transmission Date: 20060701
  Serious: Yes (Hospitalization)
  Sender: FDA-Public Use
  Company Number: 8013697

PATIENT
  Age: 40 Year
  Sex: Female
  Weight: 59 kg

DRUGS (1)
  1. KEPPRA [Suspect]
     Indication: EPILEPSY
     Dosage: 1000 MG/2/D; PO
     Route: 048
     Dates: start: 20040101

REACTIONS (7)
  - AGGRESSION [None]
  - AGITATION [None]
  - DISEASE RECURRENCE [None]
  - EPILEPSY [None]
  - INCORRECT DOSE ADMINISTERED [None]
  - IRRITABILITY [None]
  - SOMNOLENCE [None]
